FAERS Safety Report 15951853 (Version 2)
Quarter: 2019Q1

REPORT INFORMATION
  Report Type: Spontaneous
  Country: FR (occurrence: FR)
  Receive Date: 20190212
  Receipt Date: 20190220
  Transmission Date: 20190417
  Serious: Yes (Disabling, Other)
  Sender: FDA-Public Use
  Company Number: FR-PFIZER INC-2019061026

PATIENT
  Age: 62 Year
  Sex: Male
  Weight: 96 kg

DRUGS (1)
  1. CORDARONE [Suspect]
     Active Substance: AMIODARONE HYDROCHLORIDE
     Indication: CARDIAC DISORDER
     Dosage: 400 MG, DAILY
     Route: 048
     Dates: start: 20151023, end: 201601

REACTIONS (2)
  - Papilloedema [Recovered/Resolved with Sequelae]
  - Blindness [Not Recovered/Not Resolved]

NARRATIVE: CASE EVENT DATE: 20160107
